FAERS Safety Report 22228495 (Version 1)
Quarter: 2023Q2

REPORT INFORMATION
  Report Type: Spontaneous
  Country: PT (occurrence: PT)
  Receive Date: 20230419
  Receipt Date: 20230419
  Transmission Date: 20230721
  Serious: Yes (Hospitalization)
  Sender: FDA-Public Use
  Company Number: None

PATIENT
  Age: 50 Year
  Sex: Male

DRUGS (6)
  1. INDAPAMIDE\PERINDOPRIL [Suspect]
     Active Substance: INDAPAMIDE\PERINDOPRIL
     Indication: Hypertension
     Dosage: 1 DOSAGE FORM, QD,(1 X DAY,8 + 2.5 MG)
     Route: 048
     Dates: end: 20230313
  2. SIMVASTATIN [Suspect]
     Active Substance: SIMVASTATIN
     Indication: Dyslipidaemia
     Dosage: UNK
     Route: 048
     Dates: end: 20230313
  3. NAPROXEN [Suspect]
     Active Substance: NAPROXEN
     Indication: Back pain
     Dosage: UNK
     Route: 065
     Dates: start: 20230309, end: 20230312
  4. ACETAMINOPHEN\THIOCOLCHICOSIDE [Suspect]
     Active Substance: ACETAMINOPHEN\THIOCOLCHICOSIDE
     Indication: Back pain
     Dosage: 2 DOSAGE FORM,Q8H,(500 MG + 2 MG,2TABLETS 8/8H)
     Route: 065
     Dates: start: 20230309, end: 20230313
  5. TEGRETOL [Suspect]
     Active Substance: CARBAMAZEPINE
     Indication: Vertigo
     Dosage: UNK,(1/2 + 1)
     Route: 048
     Dates: end: 20230313
  6. NEXIUM [Suspect]
     Active Substance: ESOMEPRAZOLE MAGNESIUM
     Indication: Back pain
     Dosage: UNK
     Route: 065
     Dates: start: 20230309, end: 20230313

REACTIONS (2)
  - Pancreatic steatosis [Recovering/Resolving]
  - Pancreatitis acute [Recovered/Resolved]

NARRATIVE: CASE EVENT DATE: 20230312
